FAERS Safety Report 21865142 (Version 2)
Quarter: 2023Q2

REPORT INFORMATION
  Report Type: Report from Study
  Country: US (occurrence: US)
  Receive Date: 20230116
  Receipt Date: 20230426
  Transmission Date: 20230721
  Serious: Yes (Hospitalization, Other)
  Sender: FDA-Public Use
  Company Number: US-UCBSA-2022062216

PATIENT
  Sex: Female

DRUGS (1)
  1. CERTOLIZUMAB PEGOL [Suspect]
     Active Substance: CERTOLIZUMAB PEGOL
     Indication: Rheumatoid arthritis
     Dosage: 400 MILLIGRAM, EV 4 WEEKS
     Dates: end: 20221115

REACTIONS (6)
  - Hyponatraemia [Recovered/Resolved]
  - COVID-19 [Recovering/Resolving]
  - Infection [Recovering/Resolving]
  - Hordeolum [Recovered/Resolved]
  - Oropharyngeal pain [Not Recovered/Not Resolved]
  - Illness [Recovered/Resolved]
